FAERS Safety Report 7717130-9 (Version None)
Quarter: 2011Q3

REPORT INFORMATION
  Report Type: 
  Country: None (occurrence: None)
  Receive Date: 20110826
  Receipt Date: 20110826
  Transmission Date: 20111222
  Serious: Yes (Other)
  Sender: FDA-Public Use
  Company Number: None

PATIENT

DRUGS (1)
  1. ALCOHOL PAD [Suspect]

REACTIONS (4)
  - ANXIETY [None]
  - LOCALISED INFECTION [None]
  - DEVICE RELATED INFECTION [None]
  - PRODUCT QUALITY ISSUE [None]
